FAERS Safety Report 12983761 (Version 2)
Quarter: 2017Q1

REPORT INFORMATION
  Report Type: Spontaneous
  Country: GB (occurrence: GB)
  Receive Date: 20161129
  Receipt Date: 20170303
  Transmission Date: 20170428
  Serious: Yes (Other)
  Sender: FDA-Public Use
  Company Number: GB-UCBSA-2016018850

PATIENT
  Sex: Female

DRUGS (6)
  1. BRIVIACT [Suspect]
     Active Substance: BRIVARACETAM
     Dosage: 25 MG, 2X/DAY (BID)
     Route: 048
     Dates: start: 2016
  2. BRIVIACT [Suspect]
     Active Substance: BRIVARACETAM
     Dosage: 25 MG FIRST DOSE AND 12.5 MG SECOND DOSE
     Route: 048
     Dates: start: 2016, end: 2016
  3. BRIVIACT [Suspect]
     Active Substance: BRIVARACETAM
     Dosage: 25 MG, ONCE DAILY (QD)
     Route: 048
     Dates: start: 2016, end: 2016
  4. COLISTIN [Concomitant]
     Active Substance: COLISTIN
     Indication: PRODUCT USED FOR UNKNOWN INDICATION
  5. BRIVIACT [Suspect]
     Active Substance: BRIVARACETAM
     Indication: EPILEPSY
     Dosage: 25 MG, 2X/DAY (BID)
     Route: 048
     Dates: start: 201604, end: 2016
  6. CLOBAZAM [Concomitant]
     Active Substance: CLOBAZAM
     Indication: PRODUCT USED FOR UNKNOWN INDICATION
     Dosage: 5 MG

REACTIONS (27)
  - Pulmonary haemorrhage [Unknown]
  - Intentional product misuse [Unknown]
  - Skin disorder [Unknown]
  - Pain [Unknown]
  - Syncope [Unknown]
  - Ear discomfort [Not Recovered/Not Resolved]
  - Cough [Unknown]
  - Stress [Unknown]
  - Anxiety [Unknown]
  - Fall [Unknown]
  - Fatigue [Unknown]
  - Ageusia [Unknown]
  - Lung disorder [Unknown]
  - Ear pain [Not Recovered/Not Resolved]
  - Head injury [Unknown]
  - Vasodilatation [Unknown]
  - Oropharyngeal pain [Unknown]
  - Rhinorrhoea [Unknown]
  - Seizure [Unknown]
  - Rash generalised [Unknown]
  - Haemorrhage [Unknown]
  - Anosmia [Unknown]
  - Blood glucose abnormal [Unknown]
  - Nausea [Unknown]
  - Depression [Unknown]
  - Hypoacusis [Not Recovered/Not Resolved]
  - Amnesia [Unknown]

NARRATIVE: CASE EVENT DATE: 2016
